FAERS Safety Report 5270311-9 (Version None)
Quarter: 2007Q1

REPORT INFORMATION
  Report Type: 
  Country: None (occurrence: None)
  Receive Date: 20070320
  Receipt Date: 20070305
  Transmission Date: 20070707
  Serious: Yes (Other)
  Sender: FDA-Public Use
  Company Number: US-AMGEN-US204701

PATIENT
  Sex: Male
  Weight: 104.9 kg

DRUGS (4)
  1. ENBREL [Suspect]
     Indication: ANKYLOSING SPONDYLITIS
     Route: 058
     Dates: start: 20041206, end: 20061201
  2. HUMIRA [Concomitant]
     Route: 065
  3. CLINORIL [Concomitant]
     Route: 065
  4. NAPROSYN [Concomitant]
     Route: 065

REACTIONS (2)
  - ABDOMINAL PAIN UPPER [None]
  - CROHN'S DISEASE [None]
